FAERS Safety Report 23565969 (Version 1)
Quarter: 2024Q1

REPORT INFORMATION
  Report Type: Spontaneous
  Country: US (occurrence: None)
  Receive Date: 20240225
  Receipt Date: 20240225
  Transmission Date: 20240410
  Serious: Yes (Life-Threatening)
  Sender: FDA-Public Use
  Company Number: None

PATIENT
  Sex: 0

DRUGS (1)
  1. NIFEDIPINE [Suspect]
     Active Substance: NIFEDIPINE
     Dosage: FREQUENCY : DAILY;?
     Route: 048

REACTIONS (4)
  - Hypertension [None]
  - Dizziness [None]
  - Malaise [None]
  - Drug intolerance [None]
